FAERS Safety Report 8129891-8 (Version None)
Quarter: 2011Q4

REPORT INFORMATION
  Report Type: 
  Country: None (occurrence: None)
  Receive Date: 20111227
  Receipt Date: 20111123
  Transmission Date: 20120403
  Serious: No
  Sender: FDA-Public Use
  Company Number: PHEH2011US01465

PATIENT
  Age: 55 Year
  Sex: Male

DRUGS (5)
  1. VITAMIN D [Concomitant]
  2. VITAMIN B12 [Concomitant]
  3. VYTORIN [Concomitant]
  4. LOTREL [Concomitant]
  5. GILENYA [Suspect]
     Indication: RELAPSING-REMITTING MULTIPLE SCLEROSIS
     Dosage: 0.5 MG, QD, ORAL
     Route: 048
     Dates: start: 20110601

REACTIONS (3)
  - HYPOAESTHESIA [None]
  - RASH [None]
  - MALAISE [None]
